FAERS Safety Report 4530537-6 (Version None)
Quarter: 2004Q4

REPORT INFORMATION
  Report Type: 
  Country: None (occurrence: None)
  Receive Date: 20041216
  Receipt Date: 20041129
  Transmission Date: 20050328
  Serious: Yes (Hospitalization)
  Sender: FDA-Public Use
  Company Number: B0358749A

PATIENT
  Age: 35 Year
  Sex: Male

DRUGS (3)
  1. EPIVIR [Suspect]
     Indication: HIV INFECTION
  2. RETROVIR [Suspect]
     Indication: HIV INFECTION
  3. NELFINAVIR MESYLATE (NELFINAVIR MESYLATE) [Suspect]
     Indication: HIV INFECTION

REACTIONS (6)
  - BRONCHOALVEOLAR LAVAGE ABNORMAL [None]
  - LUNG NEOPLASM [None]
  - MYCOBACTERIAL INFECTION [None]
  - PNEUMOCYSTIS CARINII PNEUMONIA [None]
  - PULMONARY CAVITATION [None]
  - RESPIRATORY MONILIASIS [None]
